FAERS Safety Report 9113703 (Version 1)
Quarter: 2013Q1

REPORT INFORMATION
  Report Type: Spontaneous
  Country: US (occurrence: US)
  Receive Date: 20130208
  Receipt Date: 20130208
  Transmission Date: 20140127
  Serious: Yes (Death, Other)
  Sender: FDA-Public Use
  Company Number: CHPA2013US002401

PATIENT
  Age: 48 Year
  Sex: Female

DRUGS (5)
  1. DIPHENHYDRAMINE [Suspect]
     Dosage: UNK, UNK
     Route: 048
  2. METHADONE [Suspect]
     Dosage: UNK, UNK
     Route: 048
  3. VERAPAMIL [Suspect]
     Dosage: UNK, UNK
     Route: 048
  4. OXYCODONE [Suspect]
     Dosage: UNK, UNK
     Route: 048
  5. GABAPENTIN [Suspect]
     Dosage: UNK, UNK
     Route: 048

REACTIONS (2)
  - Accidental exposure to product [Fatal]
  - Cardio-respiratory arrest [Unknown]
